FAERS Safety Report 14064889 (Version 3)
Quarter: 2017Q4

REPORT INFORMATION
  Report Type: Spontaneous
  Country: US (occurrence: US)
  Receive Date: 20171009
  Receipt Date: 20171109
  Transmission Date: 20180321
  Serious: Yes (Hospitalization)
  Sender: FDA-Public Use
  Company Number: US-UCBSA-2017039606

PATIENT
  Age: 28 Year
  Sex: Female

DRUGS (2)
  1. BRIVIACT [Suspect]
     Active Substance: BRIVARACETAM
     Indication: PRODUCT USED FOR UNKNOWN INDICATION
     Dosage: 50 MG, 2X/DAY (BID)
     Dates: end: 201709
  2. BRIVIACT [Suspect]
     Active Substance: BRIVARACETAM
     Dosage: 100 MG, 2X/DAY (BID)
     Dates: start: 201709

REACTIONS (4)
  - Unevaluable event [Unknown]
  - Accidental exposure to product [Unknown]
  - Ventricular fibrillation [Unknown]
  - Drug intolerance [Unknown]

NARRATIVE: CASE EVENT DATE: 201709
